FAERS Safety Report 17352992 (Version 1)
Quarter: 2020Q1

REPORT INFORMATION
  Report Type: Spontaneous
  Country: US (occurrence: US)
  Receive Date: 20200131
  Receipt Date: 20200131
  Transmission Date: 20200409
  Serious: Yes (Death, Hospitalization)
  Sender: FDA-Public Use
  Company Number: US-ALVOGEN-2020-ALVOGEN-102505

PATIENT
  Age: 26 Year
  Sex: Male

DRUGS (4)
  1. AMFETAMINE [Suspect]
     Active Substance: AMPHETAMINE
     Indication: SUICIDE ATTEMPT
     Dosage: INHALATION AND UNKNOWN
  2. METAMFETAMINE HYDROCHLORIDE [Suspect]
     Active Substance: METHAMPHETAMINE HYDROCHLORIDE
     Indication: SUICIDE ATTEMPT
     Dosage: INHALATION AND UNKNOWN
  3. CARBON MONOXIDE [Suspect]
     Active Substance: CARBON MONOXIDE
     Indication: SUICIDE ATTEMPT
     Dosage: INHALATION AND UNKNOWN
  4. OXYCODONE [Suspect]
     Active Substance: OXYCODONE
     Indication: SUICIDE ATTEMPT
     Dosage: INHALATION AND UNKNOWN

REACTIONS (1)
  - Completed suicide [Fatal]
